FAERS Safety Report 10818782 (Version 1)
Quarter: 2015Q1

REPORT INFORMATION
  Report Type: Spontaneous
  Country: DK (occurrence: DK)
  Receive Date: 20150218
  Receipt Date: 20150218
  Transmission Date: 20150721
  Serious: Yes (Hospitalization)
  Sender: FDA-Public Use
  Company Number: DK-009507513-1502DNK005584

PATIENT
  Age: 26 Year
  Sex: Female
  Weight: 55 kg

DRUGS (3)
  1. CELESTON [Suspect]
     Active Substance: BETAMETHASONE
     Indication: PREMATURE LABOUR
     Dosage: STRENGTH: 5.71 MG/ML; 2 INJECTIONS  GIVEN WITH A 24 HOUR INTERVAL
  2. LAMOTRIGINE. [Concomitant]
     Active Substance: LAMOTRIGINE
     Indication: BIPOLAR DISORDER
     Dosage: UNK
     Dates: start: 2012, end: 20130806
  3. VENLAFAXINE HYDROCHLORIDE. [Concomitant]
     Active Substance: VENLAFAXINE HYDROCHLORIDE
     Dosage: UNK
     Dates: start: 2012, end: 20130820

REACTIONS (3)
  - Mood swings [Recovered/Resolved]
  - Psychotic disorder [Recovered/Resolved]
  - Sleep disorder [Recovered/Resolved]

NARRATIVE: CASE EVENT DATE: 20130810
